FAERS Safety Report 16344914 (Version 2)
Quarter: 2019Q3

REPORT INFORMATION
  Report Type: Spontaneous
  Country: US (occurrence: US)
  Receive Date: 20190522
  Receipt Date: 20190719
  Transmission Date: 20191004
  Serious: No
  Sender: FDA-Public Use
  Company Number: US-ASTRAZENECA-2019SE64287

PATIENT
  Sex: Female

DRUGS (1)
  1. BEVESPI AEROSPHERE [Suspect]
     Active Substance: FORMOTEROL FUMARATE\GLYCOPYRROLATE
     Indication: CHRONIC OBSTRUCTIVE PULMONARY DISEASE
     Dosage: 9/4.8 MCG., 2 PUFFS TWICE A DAY
     Route: 055

REACTIONS (4)
  - Insomnia [Not Recovered/Not Resolved]
  - Device failure [Unknown]
  - Device issue [Unknown]
  - Intentional product misuse [Not Recovered/Not Resolved]
